FAERS Safety Report 13705723 (Version 2)
Quarter: 2018Q1

REPORT INFORMATION
  Report Type: Report from Study
  Country: FR (occurrence: FR)
  Receive Date: 20170630
  Receipt Date: 20180122
  Transmission Date: 20180508
  Serious: Yes (Hospitalization)
  Sender: FDA-Public Use
  Company Number: FR-BAYER-2017-082238

PATIENT
  Age: 54 Year
  Sex: Female
  Weight: 50 kg

DRUGS (7)
  1. LEVOTHYROX [Concomitant]
     Active Substance: LEVOTHYROXINE
     Indication: HYPOTHYROIDISM
     Dosage: 112.5 MG, QD
     Dates: start: 2006
  2. TRIATEC [Concomitant]
     Active Substance: RAMIPRIL
     Indication: HYPERTENSION
     Dosage: 7.5 MG, QD
     Dates: start: 20161012
  3. REGORAFENIB [Suspect]
     Active Substance: REGORAFENIB
     Indication: SARCOMA METASTATIC
     Dosage: UNK
     Route: 048
     Dates: start: 20170510
  4. REGORAFENIB [Suspect]
     Active Substance: REGORAFENIB
     Indication: SARCOMA METASTATIC
     Dosage: 160 MG (40 MG TABLET)
     Route: 048
     Dates: start: 20160915, end: 20170419
  5. REGORAFENIB [Suspect]
     Active Substance: REGORAFENIB
     Indication: SARCOMA METASTATIC
     Dosage: 160 MG (40 MG TABLET)
     Route: 048
     Dates: end: 20170428
  6. EFFEXOR [Concomitant]
     Active Substance: VENLAFAXINE HYDROCHLORIDE
     Indication: DEPRESSION
     Dosage: 75 MG, QD
     Dates: start: 2011
  7. DEPAKOTE [Concomitant]
     Active Substance: DIVALPROEX SODIUM
     Indication: DEPRESSION
     Dosage: 250 MG, QD
     Dates: start: 2016

REACTIONS (5)
  - Cholecystitis [Recovered/Resolved]
  - Dyspnoea at rest [Recovered/Resolved]
  - Tachycardia [Recovered/Resolved]
  - Pulmonary oedema [Recovered/Resolved]
  - Cardiac failure [Recovered/Resolved]

NARRATIVE: CASE EVENT DATE: 20170427
